FAERS Safety Report 10496210 (Version 1)
Quarter: 2014Q4

REPORT INFORMATION
  Report Type: Spontaneous
  Country: US (occurrence: US)
  Receive Date: 20141003
  Receipt Date: 20141003
  Transmission Date: 20150528
  Serious: No
  Sender: FDA-Public Use
  Company Number: US-ENDO PHARMACEUTICALS INC.-SPIR20140006

PATIENT
  Sex: Female

DRUGS (1)
  1. SPIRONOLACTONE TABLETS 100MG [Suspect]
     Active Substance: SPIRONOLACTONE
     Indication: HYPOALDOSTERONISM
     Route: 048
     Dates: start: 2009, end: 201405

REACTIONS (4)
  - Weight decreased [Unknown]
  - Insomnia [Unknown]
  - Rash generalised [Recovered/Resolved]
  - Rash vesicular [Recovered/Resolved]

NARRATIVE: CASE EVENT DATE: 201310
